FAERS Safety Report 12499728 (Version 1)
Quarter: 2016Q2

REPORT INFORMATION
  Report Type: Spontaneous
  Country: GB (occurrence: GB)
  Receive Date: 20160627
  Receipt Date: 20160627
  Transmission Date: 20160815
  Serious: Yes (Death, Hospitalization)
  Sender: FDA-Public Use
  Company Number: GB-UNICHEM LABORATORIES LIMITED-UCM201606-000133

PATIENT
  Age: 21 Year
  Sex: Female

DRUGS (1)
  1. METRONIDAZOLE. [Suspect]
     Active Substance: METRONIDAZOLE
     Indication: GASTROINTESTINAL BACTERIAL INFECTION
     Route: 048

REACTIONS (6)
  - Cerebrovascular accident [Unknown]
  - Toxicity to various agents [Unknown]
  - Dysphagia [Unknown]
  - Hemiparesis [Unknown]
  - Acute hepatic failure [Recovering/Resolving]
  - Pneumonia aspiration [Unknown]
